FAERS Safety Report 8308452-1 (Version None)
Quarter: 2012Q2

REPORT INFORMATION
  Report Type: 
  Country: None (occurrence: None)
  Receive Date: 20120424
  Receipt Date: 20120419
  Transmission Date: 20120825
  Serious: Yes (Death)
  Sender: FDA-Public Use
  Company Number: AU-ROCHE-1061814

PATIENT
  Age: 58 Year
  Sex: Male

DRUGS (1)
  1. MABTHERA [Suspect]
     Indication: PRODUCT USED FOR UNKNOWN INDICATION
     Route: 042

REACTIONS (6)
  - URINARY RETENTION [None]
  - PARAPLEGIA [None]
  - BACK PAIN [None]
  - DISEASE PROGRESSION [None]
  - WEIGHT DECREASED [None]
  - NEUROMYOPATHY [None]
